FAERS Safety Report 13547863 (Version 2)
Quarter: 2017Q4

REPORT INFORMATION
  Report Type: Spontaneous
  Country: US (occurrence: US)
  Receive Date: 20170516
  Receipt Date: 20171110
  Transmission Date: 20180320
  Serious: No
  Sender: FDA-Public Use
  Company Number: US-BAUSCH-BL-2017-005939

PATIENT
  Sex: Female
  Weight: 59.02 kg

DRUGS (8)
  1. LATANOPROST (SANDOZ) [Suspect]
     Active Substance: LATANOPROST
     Indication: GLAUCOMA
     Route: 065
  2. LATANOPROST (SANDOZ) [Suspect]
     Active Substance: LATANOPROST
     Indication: OCULAR DISCOMFORT
  3. LATANOPROST (GREENSTONE) [Suspect]
     Active Substance: LATANOPROST
     Indication: OCULAR DISCOMFORT
  4. LATANOPROST OPHTHALMIC SOLUTION 0.005% [Suspect]
     Active Substance: LATANOPROST
     Indication: OCULAR DISCOMFORT
     Dosage: ONCE IN THE EVENING
     Route: 065
     Dates: start: 201610, end: 20170222
  5. CARVEDILOL. [Concomitant]
     Active Substance: CARVEDILOL
     Indication: BLOOD PRESSURE MEASUREMENT
  6. LATANOPROST OPHTHALMIC SOLUTION 0.005% [Suspect]
     Active Substance: LATANOPROST
     Indication: GLAUCOMA
     Route: 065
     Dates: start: 2015
  7. LATANOPROST (GREENSTONE) [Suspect]
     Active Substance: LATANOPROST
     Indication: GLAUCOMA
     Dosage: 2.5 ONCE A DAY OUNCE 0.005
     Route: 065
     Dates: start: 2009
  8. ATORVASTATIN [Concomitant]
     Active Substance: ATORVASTATIN
     Indication: BLOOD CHOLESTEROL

REACTIONS (4)
  - Balance disorder [None]
  - Inner ear disorder [Recovered/Resolved]
  - Headache [Recovered/Resolved]
  - Nasal congestion [Recovered/Resolved]

NARRATIVE: CASE EVENT DATE: 2015
